FAERS Safety Report 10297456 (Version 3)
Quarter: 2014Q3

REPORT INFORMATION
  Report Type: Report from Study
  Country: US (occurrence: US)
  Receive Date: 20140711
  Receipt Date: 20140911
  Transmission Date: 20150326
  Serious: Yes (Other)
  Sender: FDA-Public Use
  Company Number: US-SA-2014SA088521

PATIENT
  Age: 75 Year
  Sex: Male
  Weight: 95 kg

DRUGS (8)
  1. LANTUS [Suspect]
     Active Substance: INSULIN GLARGINE
     Indication: TYPE 2 DIABETES MELLITUS
     Route: 058
     Dates: start: 2000
  2. NEURONTIN [Concomitant]
     Active Substance: GABAPENTIN
     Indication: NEURALGIA
     Dates: start: 198904
  3. ATENOLOL. [Concomitant]
     Active Substance: ATENOLOL
     Indication: BLOOD PRESSURE ABNORMAL
     Dates: start: 201104
  4. LANTUS [Suspect]
     Active Substance: INSULIN GLARGINE
     Indication: TYPE 2 DIABETES MELLITUS
     Dosage: BOTTLE-40 UNITS/ PEN-30 UNITS A DAY
     Route: 065
     Dates: start: 20140421, end: 20140521
  5. LOSARTAN [Concomitant]
     Active Substance: LOSARTAN
     Indication: BLOOD PRESSURE ABNORMAL
     Dates: start: 200405
  6. LANTUS [Suspect]
     Active Substance: INSULIN GLARGINE
     Indication: TYPE 2 DIABETES MELLITUS
     Route: 065
     Dates: start: 20100405, end: 20140315
  7. FENOFIBRATE. [Concomitant]
     Active Substance: FENOFIBRATE
     Indication: BLOOD CHOLESTEROL ABNORMAL
     Dates: start: 20140611
  8. LYRICA [Concomitant]
     Active Substance: PREGABALIN
     Indication: DIABETIC NEUROPATHY
     Dates: start: 201204, end: 20140503

REACTIONS (7)
  - Drug dose omission [Unknown]
  - Neuropathy peripheral [Unknown]
  - Pain [Unknown]
  - Blood glucose increased [Not Recovered/Not Resolved]
  - Vascular graft [Unknown]
  - Cardiac operation [Unknown]
  - Insomnia [Unknown]

NARRATIVE: CASE EVENT DATE: 20140116
